FAERS Safety Report 19441722 (Version 2)
Quarter: 2021Q3

REPORT INFORMATION
  Report Type: Report from Study
  Country: BG (occurrence: BG)
  Receive Date: 20210621
  Receipt Date: 20210702
  Transmission Date: 20211014
  Serious: Yes (Hospitalization)
  Sender: FDA-Public Use
  Company Number: BG-ROCHE-2849054

PATIENT
  Age: 63 Year
  Sex: Female
  Weight: 100 kg

DRUGS (3)
  1. SYMBICORT [Concomitant]
     Active Substance: BUDESONIDE\FORMOTEROL FUMARATE DIHYDRATE
     Dosage: 2 INHALES BID
     Dates: start: 2000
  2. SEEBRI [Concomitant]
     Active Substance: GLYCOPYRROLATE
     Dosage: 1INHALE QD
     Dates: start: 2010
  3. ATEZOLIZUMAB. [Suspect]
     Active Substance: ATEZOLIZUMAB
     Indication: CERVIX CARCINOMA
     Dosage: AT 15:40 (ON 20/OCT/2020)?THE LAST DOSES PRIOR TO THE ONSET OF THE EVENT WERE ADMINISTERED ON 11/MAY
     Route: 041
     Dates: start: 20201020

REACTIONS (1)
  - Dysphagia [Recovered/Resolved]

NARRATIVE: CASE EVENT DATE: 20210519
